FAERS Safety Report 5689439-4 (Version None)
Quarter: 2008Q1

REPORT INFORMATION
  Report Type: 
  Country: None (occurrence: None)
  Receive Date: 20080331
  Receipt Date: 20080319
  Transmission Date: 20080703
  Serious: Yes (Other)
  Sender: FDA-Public Use
  Company Number: US-PFIZER INC-2008014490

PATIENT
  Age: 78 Year
  Sex: Male
  Weight: 95.3 kg

DRUGS (1)
  1. DEPO-TESTOSTERONE [Suspect]
     Route: 030
     Dates: start: 20020101

REACTIONS (2)
  - ARTHRALGIA [None]
  - BONE CANCER METASTATIC [None]
